FAERS Safety Report 12007922 (Version 1)
Quarter: 2016Q1

REPORT INFORMATION
  Report Type: Spontaneous
  Country: BR (occurrence: BR)
  Receive Date: 20160205
  Receipt Date: 20160205
  Transmission Date: 20160526
  Serious: Yes (Other)
  Sender: FDA-Public Use
  Company Number: BR-ROCHE-1706421

PATIENT
  Sex: Female
  Weight: 71 kg

DRUGS (6)
  1. MABTHERA [Suspect]
     Active Substance: RITUXIMAB
     Indication: RHEUMATOID ARTHRITIS
     Dosage: 200MG/20ML PER INFUSION
     Route: 042
     Dates: start: 201408
  2. ARADOIS [Concomitant]
     Active Substance: LOSARTAN POTASSIUM
     Indication: LABILE BLOOD PRESSURE
     Route: 065
     Dates: start: 201408
  3. SERTRALINE [Concomitant]
     Active Substance: SERTRALINE HYDROCHLORIDE
     Indication: DEPRESSION
     Route: 065
     Dates: start: 2010
  4. TECNOMET [Concomitant]
     Active Substance: METHOTREXATE
     Route: 065
     Dates: start: 2001
  5. ALPRAZOLAM. [Concomitant]
     Active Substance: ALPRAZOLAM
     Route: 065
     Dates: start: 2011
  6. HYDROCHLOROTHIAZIDE. [Concomitant]
     Active Substance: HYDROCHLOROTHIAZIDE
     Route: 065
     Dates: start: 201601

REACTIONS (2)
  - Deafness [Not Recovered/Not Resolved]
  - Drug ineffective [Unknown]
